FAERS Safety Report 21298379 (Version 1)
Quarter: 2022Q3

REPORT INFORMATION
  Report Type: Spontaneous
  Country: US (occurrence: None)
  Receive Date: 20220902
  Receipt Date: 20220902
  Transmission Date: 20221026
  Serious: Yes (Life-Threatening, Hospitalization)
  Sender: FDA-Public Use
  Company Number: None

PATIENT
  Age: 89 Year
  Sex: Female
  Weight: 66.6 kg

DRUGS (5)
  1. ATORVASTATIN [Suspect]
     Active Substance: ATORVASTATIN
     Indication: Carotid artery stenosis
     Dosage: OTHER QUANTITY : 1 TABLET(S);?FREQUENCY : DAILY;?
     Route: 048
     Dates: start: 20211027, end: 20220415
  2. TRIAMTERENE [Concomitant]
     Active Substance: TRIAMTERENE
  3. OXYBUTYNIN [Concomitant]
     Active Substance: OXYBUTYNIN
  4. LEVOTHYROXINE [Concomitant]
     Active Substance: LEVOTHYROXINE
  5. use walker for mobility [Concomitant]

REACTIONS (7)
  - Dizziness [None]
  - Lethargy [None]
  - Skin disorder [None]
  - Arthralgia [None]
  - Dry mouth [None]
  - Muscle atrophy [None]
  - Gastritis [None]

NARRATIVE: CASE EVENT DATE: 20220203
